FAERS Safety Report 8913578 (Version 1)
Quarter: 2012Q4

REPORT INFORMATION
  Report Type: Spontaneous
  Country: DK (occurrence: None)
  Receive Date: 20121113
  Receipt Date: 20121113
  Transmission Date: 20130627
  Serious: Yes (Hospitalization)
  Sender: FDA-Public Use
  Company Number: 2012MA013206

PATIENT
  Age: 82 Year
  Sex: Female

DRUGS (2)
  1. GABAPENTIN [Suspect]
     Indication: DIABETIC PERIPHERAL NEUROPATHIC PAIN
     Route: 048
     Dates: start: 20120601
  2. OXYCONTIN [Suspect]
     Indication: DIABETIC PERIPHERAL NEUROPATHIC PAIN
     Dates: start: 20120601

REACTIONS (15)
  - Glycosylated haemoglobin increased [None]
  - Blood albumin increased [None]
  - Blood magnesium decreased [None]
  - Renal failure acute [None]
  - Renal failure chronic [None]
  - Ventricular extrasystoles [None]
  - Orthostatic hypotension [None]
  - Bronchopneumonia [None]
  - Dyskinesia [None]
  - Chorea [None]
  - Vitamin B12 deficiency [None]
  - Haemorrhoids [None]
  - Diverticulitis [None]
  - Vascular encephalopathy [None]
  - Hypertension [None]
